FAERS Safety Report 25775269 (Version 1)
Quarter: 2025Q3

REPORT INFORMATION
  Report Type: Spontaneous
  Country: US (occurrence: US)
  Receive Date: 20250909
  Receipt Date: 20250909
  Transmission Date: 20251021
  Serious: No
  Sender: GLAUKOS
  Company Number: US-GLK-000673

PATIENT

DRUGS (1)
  1. DEVICE [Suspect]
     Active Substance: DEVICE
     Indication: Product used for unknown indication
     Route: 047

REACTIONS (3)
  - Device dislocation [Unknown]
  - Intraocular pressure increased [Unknown]
  - Medical device removal [Recovered/Resolved]
